FAERS Safety Report 8888669 (Version 2)
Quarter: 2012Q4

REPORT INFORMATION
  Report Type: 
  Country: US (occurrence: US)
  Receive Date: 20121106
  Receipt Date: 20121127
  Transmission Date: 20130627
  Serious: Yes (Other)
  Sender: FDA-Public Use
  Company Number: US-GLAXOSMITHKLINE-A0999505A

PATIENT
  Age: 44 Year
  Sex: Female
  Weight: 60.5 kg

DRUGS (17)
  1. VOTRIENT [Suspect]
     Indication: SARCOMA
     Dosage: 800MG per day
     Route: 048
     Dates: start: 20120809, end: 20121029
  2. FENTANYL PATCH [Concomitant]
  3. OXYCODONE [Concomitant]
  4. COMPAZINE [Concomitant]
  5. ZOFRAN [Concomitant]
  6. METFORMIN [Concomitant]
  7. INTERFERON [Concomitant]
  8. LISINOPRIL [Concomitant]
  9. OMEPRAZOLE [Concomitant]
  10. ATENOLOL [Concomitant]
  11. COQ10 [Concomitant]
  12. L-GLUTAMINE [Concomitant]
  13. VITAMIN D3 [Concomitant]
  14. MELATONIN [Concomitant]
  15. BIOTIN [Concomitant]
  16. L-CARNITINE [Concomitant]
  17. GREEN TEA [Concomitant]

REACTIONS (5)
  - Sarcoma [Not Recovered/Not Resolved]
  - Malignant neoplasm progression [Not Recovered/Not Resolved]
  - Disseminated intravascular coagulation [Not Recovered/Not Resolved]
  - Disease progression [Not Recovered/Not Resolved]
  - Thrombocytopenia [Not Recovered/Not Resolved]
